FAERS Safety Report 9953047 (Version 1)
Quarter: 2014Q1

REPORT INFORMATION
  Report Type: Report from Study
  Country: US (occurrence: US)
  Receive Date: 20140304
  Receipt Date: 20140304
  Transmission Date: 20141002
  Serious: No
  Sender: FDA-Public Use
  Company Number: US-ABBVIE-13P-163-1076469-00

PATIENT
  Age: 52 Year
  Sex: Male

DRUGS (1)
  1. HUMIRA [Suspect]
     Indication: PSORIATIC ARTHROPATHY
     Route: 058
     Dates: start: 20130301

REACTIONS (8)
  - Fatigue [Unknown]
  - Fatigue [Unknown]
  - Folliculitis [Recovered/Resolved]
  - Nasopharyngitis [Unknown]
  - Respiratory tract congestion [Unknown]
  - Cough [Unknown]
  - Sinus disorder [Unknown]
  - Pyrexia [Unknown]
